FAERS Safety Report 17019315 (Version 1)
Quarter: 2019Q4

REPORT INFORMATION
  Report Type: Spontaneous
  Country: US (occurrence: US)
  Receive Date: 20191112
  Receipt Date: 20191112
  Transmission Date: 20200122
  Serious: Yes (Hospitalization)
  Sender: FDA-Public Use
  Company Number: US-SUN PHARMACEUTICAL INDUSTRIES LTD-2019R1-226927

PATIENT
  Age: 33 Year
  Sex: Male

DRUGS (1)
  1. VERAPAMIL [Suspect]
     Active Substance: VERAPAMIL HYDROCHLORIDE
     Indication: PRODUCT USED FOR UNKNOWN INDICATION
     Dosage: INGESTING TWENTY SUSTAINED-RELEASE TABLETS OF VERAPAMIL 120MG
     Route: 048

REACTIONS (6)
  - Acidosis [Recovering/Resolving]
  - Atrioventricular block complete [Recovering/Resolving]
  - Bradycardia [Recovering/Resolving]
  - Hypotension [Recovering/Resolving]
  - Overdose [Unknown]
  - Shock [Recovering/Resolving]
